FAERS Safety Report 17294155 (Version 1)
Quarter: 2020Q1

REPORT INFORMATION
  Report Type: Spontaneous
  Country: US (occurrence: US)
  Receive Date: 20200121
  Receipt Date: 20200121
  Transmission Date: 20200409
  Serious: No
  Sender: FDA-Public Use
  Company Number: US-SA-2020SA009077

PATIENT
  Age: 14 Year
  Sex: Female

DRUGS (1)
  1. DUPIXENT [Suspect]
     Active Substance: DUPILUMAB
     Indication: DERMATITIS
     Dosage: 200 MG, QW
     Route: 058
     Dates: start: 20200103

REACTIONS (2)
  - Product use issue [Unknown]
  - Palmar erythema [Unknown]

NARRATIVE: CASE EVENT DATE: 20200103
